FAERS Safety Report 9767477 (Version 4)
Quarter: 2014Q1

REPORT INFORMATION
  Report Type: Spontaneous
  Country: US (occurrence: US)
  Receive Date: 20131217
  Receipt Date: 20140211
  Transmission Date: 20141002
  Serious: Yes (Death, Hospitalization)
  Sender: FDA-Public Use
  Company Number: US-INCYTE CORPORATION-2013IN003021

PATIENT
  Age: 86 Year
  Sex: Male
  Weight: 79.82 kg

DRUGS (7)
  1. JAKAFI [Suspect]
     Indication: MYELODYSPLASTIC SYNDROME
     Dosage: 20 MG, BID
     Route: 048
     Dates: start: 201202
  2. JAKAFI [Suspect]
     Indication: MYELOFIBROSIS
  3. DIGOXIN [Concomitant]
     Dosage: 0.125 MG, QD
     Route: 048
  4. FLOMAX                             /00889901/ [Concomitant]
     Dosage: 0.4 MG, QD
     Route: 048
  5. METOPROLOL [Concomitant]
     Dosage: 25 MG, BID
     Route: 048
  6. COUMADIN                           /00014802/ [Concomitant]
     Dosage: 5 MG, QD
     Route: 048
  7. PERCOCET                           /00446701/ [Concomitant]
     Dosage: UNK, PRN
     Route: 048

REACTIONS (9)
  - Death [Fatal]
  - Hospitalisation [Unknown]
  - Intestinal mass [Not Recovered/Not Resolved]
  - Coagulopathy [Recovering/Resolving]
  - Polyuria [Unknown]
  - Anaemia [Recovered/Resolved]
  - Spinal column stenosis [Recovering/Resolving]
  - Pain in extremity [Recovering/Resolving]
  - Muscular weakness [Recovering/Resolving]
